FAERS Safety Report 7864827-6 (Version None)
Quarter: 2011Q4

REPORT INFORMATION
  Report Type: 
  Country: None (occurrence: None)
  Receive Date: 20111028
  Receipt Date: 20110119
  Transmission Date: 20120403
  Serious: No
  Sender: FDA-Public Use
  Company Number: US-GLAXOSMITHKLINE-A0877241A

PATIENT
  Age: 59 Year
  Sex: Female
  Weight: 99.3 kg

DRUGS (9)
  1. ENALAPRIL MALEATE [Concomitant]
     Indication: BLOOD PRESSURE
     Dosage: 20MG VARIABLE DOSE
     Route: 048
     Dates: start: 20100627, end: 20100630
  2. FAMOTIDINE [Concomitant]
     Dosage: 20MG TWICE PER DAY
     Route: 048
     Dates: start: 20100627, end: 20100630
  3. DEXAMETHASONE [Concomitant]
     Indication: CHRONIC OBSTRUCTIVE PULMONARY DISEASE
     Dosage: 10MG THREE TIMES PER DAY
     Route: 042
     Dates: start: 20100627, end: 20100628
  4. METHYLPREDNISOLONE [Concomitant]
     Indication: CHRONIC OBSTRUCTIVE PULMONARY DISEASE
     Dosage: 80MG THREE TIMES PER DAY
     Route: 042
     Dates: start: 20100629, end: 20100630
  5. VICODIN [Concomitant]
     Indication: PAIN
     Dosage: 1TAB AS REQUIRED
     Route: 048
     Dates: start: 20100627, end: 20100630
  6. ALBUTEROL [Concomitant]
     Indication: CHRONIC OBSTRUCTIVE PULMONARY DISEASE
     Dosage: 2.5MG SIX TIMES PER DAY
     Route: 055
     Dates: start: 20100627, end: 20100630
  7. IPRATROPIUM BROMIDE [Concomitant]
     Indication: CHRONIC OBSTRUCTIVE PULMONARY DISEASE
     Dosage: .5MG SIX TIMES PER DAY
     Route: 055
     Dates: start: 20100627, end: 20100630
  8. UNKNOWN MEDICATION [Concomitant]
     Indication: CHRONIC OBSTRUCTIVE PULMONARY DISEASE
     Dosage: 18MCG PER DAY
     Route: 055
     Dates: start: 20100628, end: 20100630
  9. ADVAIR DISKUS 100/50 [Suspect]
     Indication: CHRONIC OBSTRUCTIVE PULMONARY DISEASE
     Dosage: 1PUFF TWICE PER DAY
     Route: 055
     Dates: start: 20100128, end: 20100630

REACTIONS (3)
  - DRUG DISPENSING ERROR [None]
  - ADVERSE EVENT [None]
  - DRUG ADMINISTRATION ERROR [None]
